FAERS Safety Report 11511303 (Version 2)
Quarter: 2015Q4

REPORT INFORMATION
  Report Type: Spontaneous
  Country: US (occurrence: US)
  Receive Date: 20150915
  Receipt Date: 20151001
  Transmission Date: 20160304
  Serious: Yes (Hospitalization)
  Sender: FDA-Public Use
  Company Number: US-TRIS PHARMA, INC.-1041979

PATIENT
  Age: 35 Year
  Sex: Male
  Weight: 79.36 kg

DRUGS (5)
  1. HUMULIN R [Concomitant]
     Active Substance: INSULIN HUMAN
  2. LISINOPRIL AND HYDROCHLOROTHIAZIDE [Concomitant]
     Active Substance: HYDROCHLOROTHIAZIDE\LISINOPRIL
  3. HUMULIN N [Concomitant]
     Active Substance: INSULIN HUMAN
  4. DEXTROMETHORPHAN POLISTIREX [Suspect]
     Active Substance: DEXTROMETHORPHAN HYDROBROMIDE
     Indication: COUGH
     Route: 048
     Dates: start: 201508, end: 201508
  5. CALCITRIOL. [Concomitant]
     Active Substance: CALCITRIOL

REACTIONS (3)
  - Pharyngitis bacterial [Recovered/Resolved]
  - Gingival swelling [None]
  - Dyspnoea [None]

NARRATIVE: CASE EVENT DATE: 20150818
